FAERS Safety Report 5455439-2 (Version None)
Quarter: 2007Q3

REPORT INFORMATION
  Report Type: 
  Country: None (occurrence: None)
  Receive Date: 20070914
  Receipt Date: 20070830
  Transmission Date: 20080115
  Serious: Yes (Other)
  Sender: FDA-Public Use
  Company Number: 2007RR-07752

PATIENT
  Age: 58 Year
  Sex: Male

DRUGS (8)
  1. RAMIPRIL [Suspect]
     Indication: MYOCARDIAL ISCHAEMIA
     Dosage: 5 MG, QD, ORAL
     Route: 048
     Dates: start: 20060626, end: 20060901
  2. SIMVASTATIN [Suspect]
     Indication: MYOCARDIAL ISCHAEMIA
     Dosage: 40 MG, QD, ORAL
     Route: 048
     Dates: start: 20060613, end: 20060901
  3. ASPIRIN [Concomitant]
  4. CLOPIDOGREL [Concomitant]
  5. ISOSORBIDE MONONITRATE [Concomitant]
  6. PRILOSEC [Concomitant]
  7. MAGNESIUM TRISILICATE (MAGNESIUM TRISLICATE) [Concomitant]
  8. METOPROLOL TARTRATE [Concomitant]

REACTIONS (1)
  - DERMATITIS EXFOLIATIVE [None]
